FAERS Safety Report 19444999 (Version 2)
Quarter: 2021Q3

REPORT INFORMATION
  Report Type: Spontaneous
  Country: US (occurrence: US)
  Receive Date: 20210622
  Receipt Date: 20210728
  Transmission Date: 20211014
  Serious: Yes (Death)
  Sender: FDA-Public Use
  Company Number: US-FARMAPROD-202106-0889

PATIENT
  Sex: Male

DRUGS (21)
  1. OXYCODONE HYDROCHLORIDE. [Concomitant]
     Active Substance: OXYCODONE HYDROCHLORIDE
  2. ALPRAZOLAM. [Concomitant]
     Active Substance: ALPRAZOLAM
  3. VITAMIN D3 [Concomitant]
     Active Substance: CHOLECALCIFEROL
  4. METHOCARBAMOL. [Concomitant]
     Active Substance: METHOCARBAMOL
  5. TRAZODONE HYDROCHLORIDE. [Concomitant]
     Active Substance: TRAZODONE HYDROCHLORIDE
  6. OXERVATE [Suspect]
     Active Substance: CENEGERMIN-BKBJ
     Indication: NEUROTROPHIC KERATOPATHY
     Route: 047
  7. TRAVOPROST. [Concomitant]
     Active Substance: TRAVOPROST
  8. TIMOLOL MALEATE. [Concomitant]
     Active Substance: TIMOLOL MALEATE
  9. SENNA [Concomitant]
     Active Substance: SENNA LEAF\SENNOSIDES\SENNOSIDES A AND B
  10. FUROSEMIDE. [Concomitant]
     Active Substance: FUROSEMIDE
  11. FENTANYL. [Concomitant]
     Active Substance: FENTANYL
     Dosage: PATCH
  12. ERYTHROMYCIN. [Concomitant]
     Active Substance: ERYTHROMYCIN
  13. TAMSULOSIN HCL [Concomitant]
     Active Substance: TAMSULOSIN HYDROCHLORIDE
  14. VALACYCLOVIR [Concomitant]
     Active Substance: VALACYCLOVIR HYDROCHLORIDE
  15. SIMVASTATIN. [Concomitant]
     Active Substance: SIMVASTATIN
  16. DIFLUCAN [Concomitant]
     Active Substance: FLUCONAZOLE
  17. PAROXETINE. [Concomitant]
     Active Substance: PAROXETINE
     Dosage: EXTENDED RELEASE TABLET
  18. POTASSIUM CHLORIDE. [Concomitant]
     Active Substance: POTASSIUM CHLORIDE
  19. ASPIRINE [Concomitant]
     Active Substance: ASPIRIN
  20. VITAMINE C [Concomitant]
     Active Substance: ASCORBIC ACID
  21. OMEPRAZOLE. [Concomitant]
     Active Substance: OMEPRAZOLE
     Dosage: EXTENDED RELEASE CAPSULE

REACTIONS (1)
  - Death [Fatal]
